FAERS Safety Report 9492737 (Version 1)
Quarter: 2013Q3

REPORT INFORMATION
  Report Type: Report from Study
  Country: US (occurrence: US)
  Receive Date: 20130830
  Receipt Date: 20130830
  Transmission Date: 20140515
  Serious: Yes (Life-Threatening, Hospitalization)
  Sender: FDA-Public Use
  Company Number: US-009507513-1308USA010619

PATIENT
  Age: 58 Year
  Sex: Female
  Weight: 47.48 kg

DRUGS (6)
  1. DEXAMETHASONE [Suspect]
     Indication: METASTASES TO CENTRAL NERVOUS SYSTEM
     Dosage: 2 MG, QD
     Route: 048
     Dates: start: 20130527
  2. CRIZOTINIB [Suspect]
     Indication: NON-SMALL CELL LUNG CANCER
     Dosage: 250 MG, BID
     Route: 048
     Dates: start: 20120919, end: 20130716
  3. METOCLOPRAMIDE [Concomitant]
     Dosage: UNK
     Dates: start: 20130528
  4. LOPERAMIDE HYDROCHLORIDE [Concomitant]
     Dosage: UNK
     Dates: start: 20130210
  5. ACETAMINOPHEN [Concomitant]
     Dosage: UNK
     Dates: start: 20130508
  6. CLONAZEPAM [Concomitant]
     Dosage: UNK
     Dates: start: 20130624

REACTIONS (1)
  - Lung infection [Recovered/Resolved]
